FAERS Safety Report 23822749 (Version 1)
Quarter: 2024Q2

REPORT INFORMATION
  Report Type: Spontaneous
  Country: US (occurrence: US)
  Receive Date: 20240506
  Receipt Date: 20240506
  Transmission Date: 20240716
  Serious: No
  Sender: FDA-Public Use
  Company Number: US-009507513-2404USA006983

PATIENT
  Age: 28 Year
  Sex: Female

DRUGS (6)
  1. KEYTRUDA [Suspect]
     Active Substance: PEMBROLIZUMAB
     Indication: Triple negative breast cancer
     Dosage: Q3WFOR 12 CYCLES
  2. KEYTRUDA [Suspect]
     Active Substance: PEMBROLIZUMAB
     Indication: Intraductal proliferative breast lesion
  3. CYCLOPHOSPHAMIDE [Concomitant]
     Active Substance: CYCLOPHOSPHAMIDE
     Indication: Triple negative breast cancer
     Dosage: EVERY TWO WEEKS, FOR FOUR CYCLES
  4. CYCLOPHOSPHAMIDE [Concomitant]
     Active Substance: CYCLOPHOSPHAMIDE
     Indication: Intraductal proliferative breast lesion
  5. DOXORUBICIN [Concomitant]
     Active Substance: DOXORUBICIN
     Indication: Triple negative breast cancer
     Dosage: EVERY TWO WEEKS, FOR FOUR CYCLES
  6. DOXORUBICIN [Concomitant]
     Active Substance: DOXORUBICIN
     Indication: Intraductal proliferative breast lesion

REACTIONS (1)
  - Eczema [Recovered/Resolved]
